FAERS Safety Report 21036157 (Version 1)
Quarter: 2022Q3

REPORT INFORMATION
  Report Type: Spontaneous
  Country: US (occurrence: US)
  Receive Date: 20220701
  Receipt Date: 20220701
  Transmission Date: 20221027
  Serious: No
  Sender: FDA-Public Use
  Company Number: US-THERAPEUTICSMD-2021TMD02172

PATIENT
  Age: 63 Year
  Sex: Female
  Weight: 61.678 kg

DRUGS (3)
  1. IMVEXXY [Suspect]
     Active Substance: ESTRADIOL
     Indication: Uterine atrophy
     Dosage: 4 ?G, 2X/WEEK
     Route: 067
     Dates: start: 20210708
  2. IMVEXXY [Suspect]
     Active Substance: ESTRADIOL
     Indication: Ill-defined disorder
  3. VITAMINS [Concomitant]
     Active Substance: VITAMINS

REACTIONS (2)
  - Off label use [Not Recovered/Not Resolved]
  - Vaginal haemorrhage [Recovered/Resolved]

NARRATIVE: CASE EVENT DATE: 20210708
